FAERS Safety Report 7041159-X (Version None)
Quarter: 2010Q4

REPORT INFORMATION
  Report Type: 
  Country: None (occurrence: None)
  Receive Date: 20101013
  Receipt Date: 20101004
  Transmission Date: 20110411
  Serious: Yes (Other)
  Sender: FDA-Public Use
  Company Number: US-ASTRAZENECA-2010SE46870

PATIENT
  Age: 52 Year
  Sex: Male
  Weight: 142.9 kg

DRUGS (34)
  1. SEROQUEL [Suspect]
     Route: 048
  2. DEPO-PROVERA [Suspect]
     Indication: SEXUAL ABUSE
     Dosage: 500 MG ONCE IN 8 WEEKS
     Route: 030
     Dates: start: 19840620, end: 19850101
  3. DEPO-PROVERA [Suspect]
     Indication: OFF LABEL USE
     Dosage: 500 MG ONCE IN 8 WEEKS
     Route: 030
     Dates: start: 19840620, end: 19850101
  4. DEPO-PROVERA [Suspect]
     Route: 030
     Dates: end: 19861201
  5. DEPO-PROVERA [Suspect]
     Route: 030
     Dates: end: 19861201
  6. DEPO-PROVERA [Suspect]
     Route: 030
     Dates: end: 19900101
  7. DEPO-PROVERA [Suspect]
     Route: 030
     Dates: end: 19900101
  8. DEPO-PROVERA [Suspect]
     Dosage: 400 MG EVERY WEEK AND SOMETIMES 400 MG EVERY FOUR WEEKS
     Route: 030
     Dates: start: 19970101
  9. DEPO-PROVERA [Suspect]
     Dosage: 400 MG EVERY WEEK AND SOMETIMES 400 MG EVERY FOUR WEEKS
     Route: 030
     Dates: start: 19970101
  10. ASPIRIN [Concomitant]
  11. GLIPIZIDE [Concomitant]
  12. LEXAPRO [Concomitant]
  13. CARTIA XT [Concomitant]
  14. ACIPHEX [Concomitant]
  15. AVANDIA [Concomitant]
  16. CLONAZEPAM [Concomitant]
  17. LISINOPRIL [Concomitant]
  18. REGLAN [Concomitant]
  19. ADVAIR DISKUS 100/50 [Concomitant]
  20. SINGULAIR ^DIECKMANN^ [Concomitant]
  21. NASONEX [Concomitant]
  22. PRAVACHOL [Concomitant]
  23. POLYETHYLENE GLYCOL [Concomitant]
  24. CELEXA [Concomitant]
  25. ABILIFY [Concomitant]
  26. VITAMIN B-12 [Concomitant]
  27. ALBUTEROL [Concomitant]
  28. PROTONIX [Concomitant]
  29. MULTI-VITAMINS [Concomitant]
  30. TRAZODONE HCL [Concomitant]
  31. CARAFATE [Concomitant]
     Indication: ABDOMINAL DISCOMFORT
  32. METFORMIN [Concomitant]
  33. WELLBUTRIN [Concomitant]
  34. MIRALEX [Concomitant]

REACTIONS (9)
  - ASTHMA [None]
  - ERECTILE DYSFUNCTION [None]
  - HYPERTENSION [None]
  - INCREASED APPETITE [None]
  - PENIS DISORDER [None]
  - PROSTATIC DISORDER [None]
  - SLEEP APNOEA SYNDROME [None]
  - THERAPEUTIC PRODUCT INEFFECTIVE FOR UNAPPROVED INDICATION [None]
  - WEIGHT INCREASED [None]
